FAERS Safety Report 24756591 (Version 1)
Quarter: 2024Q4

REPORT INFORMATION
  Report Type: Spontaneous
  Country: US (occurrence: US)
  Receive Date: 20241220
  Receipt Date: 20241220
  Transmission Date: 20250114
  Serious: No
  Sender: ROCHE
  Company Number: US-ROCHE-10000156733

PATIENT
  Age: 72 Year
  Sex: Male

DRUGS (4)
  1. ATEZOLIZUMAB [Suspect]
     Active Substance: ATEZOLIZUMAB
     Indication: Hepatocellular carcinoma
     Route: 065
  2. BETAMETHASONE [Concomitant]
     Active Substance: BETAMETHASONE
  3. CLOTRIMAZOLE [Concomitant]
     Active Substance: CLOTRIMAZOLE
  4. APREMILAST [Concomitant]
     Active Substance: APREMILAST

REACTIONS (1)
  - Psoriasis [Recovering/Resolving]
